FAERS Safety Report 21376908 (Version 6)
Quarter: 2023Q4

REPORT INFORMATION
  Report Type: Spontaneous
  Country: US (occurrence: US)
  Receive Date: 20220926
  Receipt Date: 20231026
  Transmission Date: 20240110
  Serious: Yes (Other)
  Sender: FDA-Public Use
  Company Number: US-PFIZER INC-PV202200069767

PATIENT
  Age: 18 Year
  Sex: Male

DRUGS (5)
  1. XELJANZ [Suspect]
     Active Substance: TOFACITINIB CITRATE
     Indication: Colitis ulcerative
     Dosage: 10 MG, 3X/DAY
     Route: 048
     Dates: start: 20220828
  2. XELJANZ [Suspect]
     Active Substance: TOFACITINIB CITRATE
     Dosage: 10 MG, 2X/DAY (ONE TABLET BY MOUTH TWICE DAILY X7 DAYS)
  3. METHYLPREDNISOLONE [Concomitant]
     Active Substance: METHYLPREDNISOLONE
     Dosage: UNK
     Route: 042
  4. AMINO ACIDS\DEXTROSE\ELECTROLYTES NOS\SOYBEAN OIL [Concomitant]
     Active Substance: AMINO ACIDS\DEXTROSE\ELECTROLYTES NOS\SOYBEAN OIL
     Dosage: UNK
  5. METHOTREXATE [Concomitant]
     Active Substance: METHOTREXATE
     Dosage: METHOTREXATE (X3 DAYS)

REACTIONS (13)
  - Rectal haemorrhage [Unknown]
  - Condition aggravated [Unknown]
  - Haematochezia [Unknown]
  - Chest pain [Unknown]
  - Gastrooesophageal reflux disease [Unknown]
  - Depression [Recovered/Resolved]
  - Alopecia [Unknown]
  - Frequent bowel movements [Unknown]
  - Anxiety [Recovered/Resolved]
  - Respiratory tract infection [Unknown]
  - Product dose omission in error [Unknown]
  - Off label use [Unknown]
  - Intentional product use issue [Unknown]

NARRATIVE: CASE EVENT DATE: 20220829
